FAERS Safety Report 16369880 (Version 3)
Quarter: 2019Q3

REPORT INFORMATION
  Report Type: Spontaneous
  Country: US (occurrence: US)
  Receive Date: 20190530
  Receipt Date: 20190705
  Transmission Date: 20191004
  Serious: No
  Sender: FDA-Public Use
  Company Number: US-009507513-1905USA007292

PATIENT

DRUGS (2)
  1. RECONSTITUTION SYSTEM (DEVICE) [Suspect]
     Active Substance: DEVICE
     Dosage: UNK
  2. TICE BCG [Suspect]
     Active Substance: BACILLUS CALMETTE-GUERIN SUBSTRAIN TICE LIVE ANTIGEN
     Indication: BLADDER CANCER
     Route: 043

REACTIONS (3)
  - No adverse event [Unknown]
  - Device leakage [Unknown]
  - Product dose omission [Unknown]
